FAERS Safety Report 9564231 (Version 3)
Quarter: 2014Q1

REPORT INFORMATION
  Report Type: Spontaneous
  Country: US (occurrence: US)
  Receive Date: 20130930
  Receipt Date: 20140211
  Transmission Date: 20141002
  Serious: Yes (Hospitalization)
  Sender: FDA-Public Use
  Company Number: US-BIOGENIDEC-2013BI091761

PATIENT
  Age: 46 Year
  Sex: Female

DRUGS (6)
  1. TECFIDERA [Suspect]
     Indication: MULTIPLE SCLEROSIS
     Route: 048
     Dates: start: 20130719, end: 20130726
  2. TECFIDERA [Suspect]
     Indication: MULTIPLE SCLEROSIS
     Route: 048
     Dates: start: 20130726
  3. NEURONTIN [Concomitant]
     Indication: MUSCULOSKELETAL PAIN
  4. PROZAC [Concomitant]
  5. WELLBUTRIN SR [Concomitant]
  6. VITAMIN D [Concomitant]

REACTIONS (10)
  - Dehydration [Recovered/Resolved]
  - Leukocytosis [Not Recovered/Not Resolved]
  - Eosinophilia [Not Recovered/Not Resolved]
  - Nausea [Recovered/Resolved]
  - Vomiting [Recovered/Resolved]
  - Diarrhoea [Recovered/Resolved]
  - Abdominal pain [Recovered/Resolved]
  - Hot flush [Unknown]
  - Eructation [Unknown]
  - Throat irritation [Unknown]
